FAERS Safety Report 7406596-X (Version None)
Quarter: 2011Q2

REPORT INFORMATION
  Report Type: 
  Country: None (occurrence: None)
  Receive Date: 20110411
  Receipt Date: 20110328
  Transmission Date: 20111010
  Serious: Yes (Hospitalization, Other)
  Sender: FDA-Public Use
  Company Number: US-CELGENEUS-163-21880-11030078

PATIENT
  Sex: Male
  Weight: 79.45 kg

DRUGS (14)
  1. OXYCONTIN [Concomitant]
     Route: 048
  2. COUMADIN [Concomitant]
     Route: 048
  3. LASIX [Concomitant]
     Dosage: 40 MILLIGRAM
     Route: 048
  4. NEXIUM [Concomitant]
     Dosage: 40 MILLIGRAM
     Route: 048
  5. REVLIMID [Suspect]
     Dosage: 25 MILLIGRAM
     Route: 048
     Dates: start: 20101102, end: 20110217
  6. DEXAMETHASONE [Concomitant]
     Dosage: 40 MILLIGRAM
     Route: 048
  7. VENTOLIN [Concomitant]
     Route: 055
     Dates: start: 20100824
  8. REVLIMID [Suspect]
     Indication: MULTIPLE MYELOMA
     Dosage: 10 MILLIGRAM
     Route: 048
     Dates: start: 20090707, end: 20101102
  9. ZOMETA [Concomitant]
     Route: 051
  10. POTASSIUM CHLORIDE [Concomitant]
     Dosage: 10 MILLIEQUIVALENTS
     Route: 048
  11. LOPRESSOR [Concomitant]
     Route: 048
  12. COLACE [Concomitant]
     Route: 048
  13. VITAMIN D [Concomitant]
     Dosage: 5000 IU (INTERNATIONAL UNIT)
     Route: 048
  14. AMOX-CLAV [Concomitant]
     Route: 048
     Dates: start: 20100215, end: 20100226

REACTIONS (8)
  - HAEMORRHAGE [None]
  - THROMBOCYTOPENIA [None]
  - ANAEMIA [None]
  - ARTHRALGIA [None]
  - MASS [None]
  - NAUSEA [None]
  - ASTHENIA [None]
  - HAEMOPTYSIS [None]
